FAERS Safety Report 13907902 (Version 1)
Quarter: 2017Q3

REPORT INFORMATION
  Report Type: Spontaneous
  Country: US (occurrence: US)
  Receive Date: 20170825
  Receipt Date: 20170825
  Transmission Date: 20171127
  Serious: Yes (Other)
  Sender: FDA-Public Use
  Company Number: US-ROCHE-1323935

PATIENT
  Age: 7 Year
  Sex: Male
  Weight: 23 kg

DRUGS (4)
  1. NUTROPIN AQ [Suspect]
     Active Substance: SOMATROPIN
     Indication: HYPOTHALAMO-PITUITARY DISORDER
     Dosage: NIGHTLY FOR 2 WEEKS
     Route: 058
     Dates: start: 20131003, end: 20131209
  2. NUTROPIN AQ [Suspect]
     Active Substance: SOMATROPIN
     Indication: GROWTH HORMONE DEFICIENCY
     Dosage: ADVANCED TO 0.4 MG 2 WEEKS LATER
     Route: 058
  3. NUTROPIN AQ [Suspect]
     Active Substance: SOMATROPIN
     Dosage: ADVANCED TO 0.6 MG 2 WEEKS LATER
     Route: 058
  4. NUTROPIN AQ [Suspect]
     Active Substance: SOMATROPIN
     Dosage: TARGET DOSE OF 0.8 MG
     Route: 058
     Dates: start: 20131114

REACTIONS (2)
  - Intracranial pressure increased [Recovering/Resolving]
  - Vomiting [Unknown]

NARRATIVE: CASE EVENT DATE: 20131107
